FAERS Safety Report 5019357-6 (Version None)
Quarter: 2006Q2

REPORT INFORMATION
  Report Type: 
  Country: None (occurrence: None)
  Receive Date: 20060531
  Receipt Date: 20060518
  Transmission Date: 20061013
  Serious: Yes (Hospitalization, Other)
  Sender: FDA-Public Use
  Company Number: 2006065131

PATIENT
  Age: 85 Year
  Sex: Female

DRUGS (12)
  1. DIFLUCAN [Suspect]
     Indication: INTERVERTEBRAL DISCITIS
     Dosage: 400 MG (UNKNOWN) ORAL
     Route: 048
     Dates: start: 20060326
  2. CELEBREX [Suspect]
     Indication: BACK PAIN
     Dosage: 200 MG (200 MG, 1 IN 1 D) ORAL
     Route: 048
     Dates: start: 20060301, end: 20060511
  3. ALDACTAZINE (ALTIZIDE, SPIRONOLACTONE) [Concomitant]
  4. AMLODIPINE [Concomitant]
  5. DIAMICRON (GLICLAZIDE) [Concomitant]
  6. OMEPRAZOLE [Concomitant]
  7. ARICEPT [Concomitant]
  8. LORAMET (LORMETAZEPAM) [Concomitant]
  9. VITAMIN B-12 [Concomitant]
  10. VITAMIN B6 [Concomitant]
  11. ACETAMINOPHEN [Concomitant]
  12. XALATAN [Concomitant]

REACTIONS (2)
  - BRADYCARDIA [None]
  - HYPERKALAEMIA [None]
